FAERS Safety Report 8538516 (Version 2)
Quarter: 2013Q3

REPORT INFORMATION
  Report Type: Spontaneous
  Country: US (occurrence: US)
  Receive Date: 20120501
  Receipt Date: 20130709
  Transmission Date: 20140515
  Serious: No
  Sender: FDA-Public Use
  Company Number: US-BIOGENIDEC-2012BI014164

PATIENT
  Age: 40 Year
  Sex: Female

DRUGS (1)
  1. TYSABRI [Suspect]
     Indication: MULTIPLE SCLEROSIS
     Route: 042
     Dates: start: 20120322

REACTIONS (4)
  - Muscle spasticity [Not Recovered/Not Resolved]
  - Hypoaesthesia [Recovered/Resolved]
  - Depression [Not Recovered/Not Resolved]
  - Asthenia [Recovered/Resolved]
